FAERS Safety Report 4933421-9 (Version None)
Quarter: 2006Q1

REPORT INFORMATION
  Report Type: 
  Country: None (occurrence: None)
  Receive Date: 20060306
  Receipt Date: 20050201
  Transmission Date: 20060701
  Serious: Yes (Disabling)
  Sender: FDA-Public Use
  Company Number: MT-GLAXOSMITHKLINE-B0370891A

PATIENT
  Age: 47 Year
  Sex: Male

DRUGS (3)
  1. AUGMENTIN '125' [Suspect]
     Indication: EPISTAXIS
     Dosage: 1.2G UNKNOWN
     Route: 065
  2. AUGMENTIN '125' [Concomitant]
     Route: 048
  3. AMOXIL [Concomitant]
     Route: 048

REACTIONS (7)
  - BRAIN DAMAGE [None]
  - CIRCULATORY COLLAPSE [None]
  - CONVULSION [None]
  - DRUG HYPERSENSITIVITY [None]
  - DYSKINESIA [None]
  - FOAMING AT MOUTH [None]
  - URINARY INCONTINENCE [None]
